FAERS Safety Report 12866316 (Version 2)
Quarter: 2016Q4

REPORT INFORMATION
  Report Type: Spontaneous
  Country: US (occurrence: US)
  Receive Date: 20161020
  Receipt Date: 20161202
  Transmission Date: 20170207
  Serious: No
  Sender: FDA-Public Use
  Company Number: US-JNJFOC-20160926355

PATIENT
  Age: 65 Year
  Sex: Female

DRUGS (2)
  1. KETOCONAZOLE. [Suspect]
     Active Substance: KETOCONAZOLE
     Indication: PSORIASIS
     Dosage: 2% SOLUTION
     Route: 061
     Dates: start: 20160827
  2. KETOCONAZOLE. [Suspect]
     Active Substance: KETOCONAZOLE
     Indication: FUNGAL INFECTION
     Dosage: 2% SOLUTION
     Route: 061
     Dates: start: 20160827

REACTIONS (5)
  - Product use issue [Unknown]
  - Off label use [Unknown]
  - Product quality issue [Unknown]
  - Alopecia [Not Recovered/Not Resolved]
  - Drug ineffective [Unknown]

NARRATIVE: CASE EVENT DATE: 20160827
